FAERS Safety Report 6135118-9 (Version None)
Quarter: 2009Q1

REPORT INFORMATION
  Report Type: 
  Country: None (occurrence: None)
  Receive Date: 20090325
  Receipt Date: 20090308
  Transmission Date: 20090719
  Serious: Yes (Hospitalization, Other)
  Sender: FDA-Public Use
  Company Number: 2006S1003051

PATIENT
  Age: 71 Year
  Sex: Male
  Weight: 84.8226 kg

DRUGS (10)
  1. PHOSPHOSODA GINGER LEMON [Suspect]
     Indication: COLONOSCOPY
     Dosage: 80 ML; TOTAL; PO
     Route: 048
     Dates: start: 20050920, end: 20050921
  2. PLENDIL [Concomitant]
  3. MULTI-VITAMINS [Concomitant]
  4. ASPIRIN [Concomitant]
  5. FOLIC ACID [Concomitant]
  6. ASPIRIN [Concomitant]
  7. POLYCOSANOL [Concomitant]
  8. GLUCOSAMINE [Concomitant]
  9. SYNTHROID [Concomitant]
  10. ALTOCOR [Concomitant]

REACTIONS (4)
  - ANAEMIA [None]
  - FATIGUE [None]
  - HYPERHOMOCYSTEINAEMIA [None]
  - RENAL FAILURE ACUTE [None]
